FAERS Safety Report 18042748 (Version 1)
Quarter: 2020Q3

REPORT INFORMATION
  Report Type: Spontaneous
  Country: CA (occurrence: CA)
  Receive Date: 20200720
  Receipt Date: 20200720
  Transmission Date: 20201103
  Serious: Yes (Hospitalization, Other)
  Sender: FDA-Public Use
  Company Number: CA-ACCORD-191089

PATIENT
  Age: 13 Year
  Sex: Male
  Weight: 60 kg

DRUGS (12)
  1. METHOTREXATE. [Suspect]
     Active Substance: METHOTREXATE
     Indication: ACUTE LYMPHOCYTIC LEUKAEMIA
     Route: 042
  2. PREDNISONE. [Concomitant]
     Active Substance: PREDNISONE
  3. CYTARABINE/CYTARABINE HYDROCHLORIDE/CYTARABINE OCFOSFATE [Concomitant]
     Active Substance: CYTARABINE
     Dosage: POWDER FOR SOLUTION INTRATHECAL
  4. VINCRISTINE [Concomitant]
     Active Substance: VINCRISTINE
  5. METHYLPREDNISOLONE. [Concomitant]
     Active Substance: METHYLPREDNISOLONE
  6. PEGASPARGASE [Concomitant]
     Active Substance: PEGASPARGASE
  7. MERCAPTOPURINE/MERCAPTOPURINE ANHYDROUS [Concomitant]
     Active Substance: MERCAPTOPURINE
  8. DOXORUBICIN [Concomitant]
     Active Substance: DOXORUBICIN
  9. ASPARAGINASE [Concomitant]
     Active Substance: ASPARAGINASE
  10. ETOPOSIDE. [Concomitant]
     Active Substance: ETOPOSIDE
  11. DEXAMETHASONE. [Concomitant]
     Active Substance: DEXAMETHASONE
  12. CYCLOPHOSPHAMIDE/CYCLOPHOSPHAMIDE MONOHYDRATE [Concomitant]
     Active Substance: CYCLOPHOSPHAMIDE

REACTIONS (4)
  - Mucosal inflammation [Unknown]
  - Stomatitis necrotising [Unknown]
  - Toxicity to various agents [Unknown]
  - Osteonecrosis of jaw [Unknown]
